FAERS Safety Report 8364801-X (Version None)
Quarter: 2012Q2

REPORT INFORMATION
  Report Type: 
  Country: None (occurrence: None)
  Receive Date: 20120516
  Receipt Date: 20120511
  Transmission Date: 20120825
  Serious: Yes (Life-Threatening, Other)
  Sender: FDA-Public Use
  Company Number: CA-ASTRAZENECA-2012SE30542

PATIENT
  Age: 70 Year
  Sex: Female

DRUGS (6)
  1. SEROQUEL XR [Suspect]
     Route: 048
  2. PERCOCET [Concomitant]
     Dosage: 5/325 MG Q4H PRN
     Dates: start: 20111008
  3. CELEXA [Concomitant]
     Route: 048
     Dates: start: 20120511
  4. TRAZODONE HCL [Concomitant]
     Route: 048
     Dates: start: 20120511
  5. ADALAT [Concomitant]
     Dates: start: 20111001
  6. RISPERDAL [Interacting]
     Route: 048
     Dates: start: 20120511

REACTIONS (3)
  - RESPIRATORY DISTRESS [None]
  - DRUG INTERACTION [None]
  - DYSPNOEA [None]
